FAERS Safety Report 7562456-5 (Version None)
Quarter: 2011Q2

REPORT INFORMATION
  Report Type: 
  Country: None (occurrence: None)
  Receive Date: 20110621
  Receipt Date: 20110621
  Transmission Date: 20111010
  Serious: Yes (Hospitalization)
  Sender: FDA-Public Use
  Company Number: None

PATIENT
  Age: 58 Year
  Sex: Male

DRUGS (2)
  1. PEGASYS [Suspect]
     Indication: HEPATITIS C
     Dosage: 180MCG SQ QW
     Route: 058
     Dates: start: 20110322
  2. RIBASPHERE [Suspect]
     Indication: HEPATITIS C
     Dosage: 600MG PO BID
     Route: 048
     Dates: start: 20110322

REACTIONS (5)
  - RASH [None]
  - BLOOD COUNT ABNORMAL [None]
  - DEPRESSION [None]
  - ASTHENIA [None]
  - DYSPNOEA [None]
